FAERS Safety Report 19879027 (Version 1)
Quarter: 2021Q3

REPORT INFORMATION
  Report Type: Report from Study
  Country: MX (occurrence: MX)
  Receive Date: 20210923
  Receipt Date: 20210923
  Transmission Date: 20211014
  Serious: Yes (Hospitalization, Other)
  Sender: FDA-Public Use
  Company Number: MX-BRISTOL-MYERS SQUIBB COMPANY-BMS-2021-096427

PATIENT
  Age: 23 Year
  Sex: Male

DRUGS (1)
  1. NIVOLUMAB [Suspect]
     Active Substance: NIVOLUMAB
     Indication: HODGKIN^S DISEASE
     Dosage: 150 MILLIGRAM, Q3WK
     Route: 042
     Dates: start: 20210813, end: 20210910

REACTIONS (2)
  - Off label use [Unknown]
  - Bacteraemia [Recovering/Resolving]

NARRATIVE: CASE EVENT DATE: 20210910
